FAERS Safety Report 25818019 (Version 1)
Quarter: 2025Q3

REPORT INFORMATION
  Report Type: Spontaneous
  Country: US (occurrence: US)
  Receive Date: 20250918
  Receipt Date: 20250918
  Transmission Date: 20251020
  Serious: No
  Sender: ITALFARMACO SPA
  Company Number: US-ITALFARMACO SPA-2184782

PATIENT
  Age: 15 Year
  Sex: Male
  Weight: 32.03 kg

DRUGS (18)
  1. DUVYZAT [Suspect]
     Active Substance: GIVINOSTAT
     Indication: Duchenne muscular dystrophy
     Dates: start: 20250422
  2. AGAMREE [Concomitant]
     Active Substance: VAMOROLONE
  3. ZOLEDRONIC ACID [Concomitant]
     Active Substance: ZOLEDRONIC ACID
  4. VITAMIN E [Concomitant]
     Active Substance: .ALPHA.-TOCOPHEROL
  5. SOLU-CORTEF [Concomitant]
     Active Substance: HYDROCORTISONE SODIUM SUCCINATE
  6. SODIUM CHLORIDE [Concomitant]
     Active Substance: SODIUM CHLORIDE
  7. OMEGA-3 FATTY ACIDS [Concomitant]
     Active Substance: OMEGA-3 FATTY ACIDS
  8. MAGNESIUM CITRATE [Concomitant]
     Active Substance: MAGNESIUM CITRATE
  9. LOSARTAN [Concomitant]
     Active Substance: LOSARTAN
  10. LIDOCAINE [Concomitant]
     Active Substance: LIDOCAINE
  11. IBUPROFEN [Concomitant]
     Active Substance: IBUPROFEN
  12. HYDROCORTISONE ACETATE [Concomitant]
     Active Substance: HYDROCORTISONE ACETATE
  13. ERGOCALCIFEROL [Concomitant]
     Active Substance: ERGOCALCIFEROL
  14. EPLERENONE [Concomitant]
     Active Substance: EPLERENONE
  15. ELEVIDYS [Concomitant]
     Active Substance: DELANDISTROGENE MOXEPARVOVEC-ROKL
  16. CALCIUM CARBONATE [Concomitant]
     Active Substance: CALCIUM CARBONATE
  17. CALCITRIOL [Concomitant]
     Active Substance: CALCITRIOL
  18. AMONDYS 45 [Concomitant]
     Active Substance: CASIMERSEN

REACTIONS (2)
  - Accidental overdose [Unknown]
  - Thrombocytopenia [Unknown]

NARRATIVE: CASE EVENT DATE: 20250423
